FAERS Safety Report 6327886-8 (Version None)
Quarter: 2009Q3

REPORT INFORMATION
  Report Type: 
  Country: None (occurrence: None)
  Receive Date: 20090824
  Receipt Date: 20090812
  Transmission Date: 20100115
  Serious: Yes (Hospitalization)
  Sender: FDA-Public Use
  Company Number: SPV1-2009-01357

PATIENT
  Age: 68 Year
  Sex: Female
  Weight: 81 kg

DRUGS (29)
  1. FOSRENOL [Suspect]
     Indication: HYPERPHOSPHATAEMIA
     Dosage: 750 MG, 3X/DAY:TID, ORAL, 750 MG, 1X/DAY:QD, 1000 MG, 3X/DAY:TID, ORAL
     Route: 048
     Dates: start: 20080218, end: 20080710
  2. FOSRENOL [Suspect]
     Indication: HYPERPHOSPHATAEMIA
     Dosage: 750 MG, 3X/DAY:TID, ORAL, 750 MG, 1X/DAY:QD, 1000 MG, 3X/DAY:TID, ORAL
     Route: 048
     Dates: start: 20080711, end: 20081116
  3. FOSRENOL [Suspect]
     Indication: HYPERPHOSPHATAEMIA
     Dosage: 750 MG, 3X/DAY:TID, ORAL, 750 MG, 1X/DAY:QD, 1000 MG, 3X/DAY:TID, ORAL
     Route: 048
     Dates: start: 20081117
  4. CALCIUMACETAT (CALCIUM ACETATE) [Concomitant]
  5. CALCIMAGON (CALCIUM CARBONATE) [Concomitant]
  6. ANTI-PHOSPHAT (ALUMINIUM HYDROXIDE) [Concomitant]
  7. ASS (ACETYLSALICYLIC ACID) TABLET [Concomitant]
  8. PLAVIX [Concomitant]
  9. FUROSEMIDE [Concomitant]
  10. XIPAMID (XIPAMIDE) [Concomitant]
  11. RAMIPRIL [Concomitant]
  12. SIMVASTATIN [Concomitant]
  13. TETRAZEPAM (TETRAZEPAM) [Concomitant]
  14. PREDNISOLONE [Concomitant]
  15. FOSAMAX [Concomitant]
  16. DURAGESIC-100 [Concomitant]
  17. LYRICA [Concomitant]
  18. BONIDOL (ALFACALCIDOL) [Concomitant]
  19. ACTRAPID (INSULIN GLARGINE) [Concomitant]
  20. LANTUS [Concomitant]
  21. MIRTAZAPINE [Concomitant]
  22. SALBUTAMOL (SALBUTAMOL) [Concomitant]
  23. THYRONAJOD (LEVOTHYROXINE SODIUM, POTASSIUM IODIDE) [Concomitant]
  24. OMEPRAZOLE [Concomitant]
  25. EPOETIN ALFA (EPOETIN ALFA) [Concomitant]
  26. FERRLECIT (ASCORBIC ACID, FERRIC SODIUM CITRATE, FERROUS SULFATE, NICO [Concomitant]
  27. BRICANYL [Concomitant]
  28. GINGIUM (GINKGO BILOBA EXTRACT) [Concomitant]
  29. BENZAFIBRAT (BEZAFIBRATE) [Concomitant]

REACTIONS (3)
  - DRUG ADMINISTRATION ERROR [None]
  - ILEUS [None]
  - X-RAY ABNORMAL [None]
